FAERS Safety Report 8830333 (Version 2)
Quarter: 2016Q2

REPORT INFORMATION
  Report Type: Spontaneous
  Country: US (occurrence: US)
  Receive Date: 20121009
  Receipt Date: 20160622
  Transmission Date: 20160815
  Serious: Yes (Hospitalization, Disabling, Other)
  Sender: FDA-Public Use
  Company Number: US-009507513-1210USA003142

PATIENT
  Sex: Female

DRUGS (1)
  1. FOSAMAX [Suspect]
     Active Substance: ALENDRONATE SODIUM
     Indication: OSTEOPOROSIS
     Dosage: UNK
     Route: 048
     Dates: end: 20090913

REACTIONS (7)
  - Femur fracture [Not Recovered/Not Resolved]
  - Impaired healing [Unknown]
  - Spinal compression fracture [Unknown]
  - Device fastener issue [Unknown]
  - Body height decreased [Unknown]
  - Osteoporosis [Unknown]
  - Cataract operation [Unknown]

NARRATIVE: CASE EVENT DATE: 200006
